FAERS Safety Report 18381598 (Version 1)
Quarter: 2020Q4

REPORT INFORMATION
  Report Type: Report from Study
  Country: US (occurrence: US)
  Receive Date: 20201014
  Receipt Date: 20201014
  Transmission Date: 20210114
  Serious: Yes (Hospitalization, Other)
  Sender: FDA-Public Use
  Company Number: US-ADAMAS PHARMA, LLC-2020ADA02266

PATIENT
  Age: 69 Year
  Sex: Male

DRUGS (15)
  1. MIRALAX [Concomitant]
     Active Substance: POLYETHYLENE GLYCOL 3350
  2. TAMSULOSIN [Concomitant]
     Active Substance: TAMSULOSIN
  3. HIGH POTENCY B COMPLEX WITH ALPHA LIPOIC ACID [Concomitant]
  4. CARBIDOPA/LEVODOPA [Concomitant]
     Active Substance: CARBIDOPA\LEVODOPA
     Dosage: 1.5 DOSAGE UNITS, 4X/DAY
  5. DEEP BRAIN STIMULATION [Concomitant]
  6. GOCOVRI [Suspect]
     Active Substance: AMANTADINE
     Indication: DYSKINESIA
     Dosage: 137 MG, 1X/DAY AT BEDTIME
     Route: 048
     Dates: start: 20180216, end: 20200917
  7. AMITRIPTYLINE [Concomitant]
     Active Substance: AMITRIPTYLINE
     Dosage: 30 MG, 1X/DAY
  8. ASPIRIN. [Concomitant]
     Active Substance: ASPIRIN
     Dosage: LOW DOSE, 1X/DAY
  9. GABAPENTIN. [Concomitant]
     Active Substance: GABAPENTIN
     Dosage: UNK, 1X/DAY
  10. BYSTOLIC [Concomitant]
     Active Substance: NEBIVOLOL HYDROCHLORIDE
     Dosage: UNK, 1X/DAY
  11. ISRADIPINE. [Concomitant]
     Active Substance: ISRADIPINE
  12. NOURIANZ [Concomitant]
     Active Substance: ISTRADEFYLLINE
     Dosage: UNK
     Dates: end: 202008
  13. VITAMIN D3 [Concomitant]
     Active Substance: CHOLECALCIFEROL
  14. STALEVO [Concomitant]
     Active Substance: CARBIDOPA\ENTACAPONE\LEVODOPA
     Dosage: 3.5 DOSAGE UNITS, 4X/DAY
  15. MAGNESIUM [Concomitant]
     Active Substance: MAGNESIUM
     Dosage: UNK
     Dates: start: 202005

REACTIONS (5)
  - Urinary tract infection [Recovering/Resolving]
  - Product substitution [Not Recovered/Not Resolved]
  - Urosepsis [Unknown]
  - Dysarthria [Not Recovered/Not Resolved]
  - Cerebrovascular accident [Not Recovered/Not Resolved]

NARRATIVE: CASE EVENT DATE: 202008
